FAERS Safety Report 4352926-5 (Version None)
Quarter: 2004Q2

REPORT INFORMATION
  Report Type: 
  Country: None (occurrence: None)
  Receive Date: 20040430
  Receipt Date: 20040311
  Transmission Date: 20050107
  Serious: No
  Sender: FDA-Public Use
  Company Number: 205252

PATIENT
  Sex: Male

DRUGS (1)
  1. XOLAIR [Suspect]
     Indication: ASTHMA
     Dosage: Q2W, SUBCUTANEOUS
     Route: 058
     Dates: start: 20040130, end: 20040227

REACTIONS (1)
  - DRY THROAT [None]
